FAERS Safety Report 23718213 (Version 1)
Quarter: 2024Q2

REPORT INFORMATION
  Report Type: Spontaneous
  Country: CA (occurrence: None)
  Receive Date: 20240406
  Receipt Date: 20240406
  Transmission Date: 20240716
  Serious: Yes (Hospitalization, Disabling)
  Sender: FDA-Public Use
  Company Number: None

PATIENT
  Age: 52 Year
  Sex: Female
  Weight: 90 kg

DRUGS (13)
  1. TOPIRAMATE [Suspect]
     Active Substance: TOPIRAMATE
     Indication: Pain
     Dosage: OTHER QUANTITY : 5 TABLET(S)?OTHER FREQUENCY : 2 AM 1NOON 2 DINNE?
     Route: 048
     Dates: start: 20210101, end: 20240310
  2. PAXIL [Concomitant]
     Active Substance: PAROXETINE HYDROCHLORIDE
  3. LIPITOR [Concomitant]
     Active Substance: ATORVASTATIN CALCIUM
  4. RAMIPRIL [Concomitant]
     Active Substance: RAMIPRIL
  5. METHOTREXATE [Concomitant]
     Active Substance: METHOTREXATE
  6. SUBOXONE [Concomitant]
     Active Substance: BUPRENORPHINE HYDROCHLORIDE\NALOXONE HYDROCHLORIDE
  7. DEXEDRINE [Concomitant]
     Active Substance: DEXTROAMPHETAMINE SULFATE
  8. IRON [Concomitant]
     Active Substance: IRON
  9. FOLIC ACID [Concomitant]
     Active Substance: FOLIC ACID
  10. PLAQUENIL [Concomitant]
     Active Substance: HYDROXYCHLOROQUINE SULFATE
  11. LEVOTHYROXINE [Concomitant]
     Active Substance: LEVOTHYROXINE\LEVOTHYROXINE SODIUM
  12. FERROUS FUMARATE [Concomitant]
     Active Substance: FERROUS FUMARATE
  13. FOLIC ACID [Concomitant]
     Active Substance: FOLIC ACID

REACTIONS (11)
  - Bladder disorder [None]
  - Urinary incontinence [None]
  - Movement disorder [None]
  - Head discomfort [None]
  - Impaired work ability [None]
  - Economic problem [None]
  - Quality of life decreased [None]
  - Suicidal ideation [None]
  - Atrophy [None]
  - Gait disturbance [None]
  - Neck deformity [None]

NARRATIVE: CASE EVENT DATE: 20210710
